FAERS Safety Report 13912161 (Version 1)
Quarter: 2017Q3

REPORT INFORMATION
  Report Type: Spontaneous
  Country: US (occurrence: US)
  Receive Date: 20170828
  Receipt Date: 20170828
  Transmission Date: 20171127
  Serious: Yes (Other)
  Sender: FDA-Public Use
  Company Number: US-ROCHE-1142471

PATIENT
  Sex: Female

DRUGS (8)
  1. SYNTHROID [Concomitant]
     Active Substance: LEVOTHYROXINE SODIUM
     Route: 065
  2. NUTROPIN [Suspect]
     Active Substance: SOMATROPIN
     Dosage: 0.18 MG OR 0.04 CC
     Route: 058
  3. NUTROPIN [Suspect]
     Active Substance: SOMATROPIN
     Route: 065
  4. WELLBUTRIN SR [Concomitant]
     Active Substance: BUPROPION HYDROCHLORIDE
     Route: 048
  5. NUTROPIN [Suspect]
     Active Substance: SOMATROPIN
     Indication: POSTOPERATIVE HYPOPITUITARISM
     Dosage: UNKNOWN DOSE
     Route: 065
  6. SYNTHROID [Concomitant]
     Active Substance: LEVOTHYROXINE SODIUM
     Route: 065
  7. CLIMARA [Concomitant]
     Active Substance: ESTRADIOL
     Route: 061
  8. ESTRATAB [Concomitant]
     Active Substance: ESTROGENS, ESTERIFIED

REACTIONS (2)
  - Fluid retention [Unknown]
  - Carpal tunnel syndrome [Unknown]
